FAERS Safety Report 7619916-8 (Version None)
Quarter: 2011Q3

REPORT INFORMATION
  Report Type: 
  Country: None (occurrence: None)
  Receive Date: 20110719
  Receipt Date: 20110708
  Transmission Date: 20111222
  Serious: Yes (Hospitalization)
  Sender: FDA-Public Use
  Company Number: US-ELI_LILLY_AND_COMPANY-US201107002778

PATIENT
  Sex: Female
  Weight: 104.31 kg

DRUGS (3)
  1. BYETTA [Suspect]
     Indication: TYPE 2 DIABETES MELLITUS
     Dosage: 5 UG, QD
     Route: 058
  2. HUMALOG [Suspect]
     Dosage: UNK
  3. BYETTA [Suspect]
     Dosage: 10 UG, QD
     Route: 058

REACTIONS (7)
  - BLOOD GLUCOSE INCREASED [None]
  - BLOOD GLUCOSE DECREASED [None]
  - WEIGHT DECREASED [None]
  - BLOOD POTASSIUM INCREASED [None]
  - OFF LABEL USE [None]
  - DIARRHOEA [None]
  - WRONG TECHNIQUE IN DRUG USAGE PROCESS [None]
